FAERS Safety Report 7727559-0 (Version None)
Quarter: 2011Q3

REPORT INFORMATION
  Report Type: 
  Country: None (occurrence: None)
  Receive Date: 20110902
  Receipt Date: 20110829
  Transmission Date: 20111222
  Serious: Yes (Other)
  Sender: FDA-Public Use
  Company Number: PT-PFIZER INC-2011194495

PATIENT
  Age: 50 Year
  Sex: Female
  Weight: 63 kg

DRUGS (8)
  1. ACETYLSALICYLIC ACID [Concomitant]
  2. ECALTA [Suspect]
     Indication: FUNGAL INFECTION
     Dosage: 200 MG, 1X/DAY
     Route: 042
     Dates: start: 20110818, end: 20110818
  3. PARACETAMOL [Concomitant]
  4. ASPEGIC 325 [Concomitant]
     Dosage: 1000 UNK, UNK
  5. TRAMADOL [Concomitant]
  6. TAMSULOSIN [Concomitant]
  7. METOCLOPRAMIDE [Concomitant]
  8. MEROPENEM [Concomitant]
     Dosage: UNK
     Dates: end: 20110101

REACTIONS (5)
  - ERYTHEMA [None]
  - ABDOMINAL PAIN UPPER [None]
  - DYSPNOEA [None]
  - TACHYCARDIA [None]
  - CHEST PAIN [None]
